FAERS Safety Report 9278845 (Version 3)
Quarter: 2013Q3

REPORT INFORMATION
  Report Type: Spontaneous
  Country: US (occurrence: US)
  Receive Date: 20130508
  Receipt Date: 20130709
  Transmission Date: 20140515
  Serious: No
  Sender: FDA-Public Use
  Company Number: US-PFIZER INC-2013141522

PATIENT
  Age: 42 Year
  Sex: Male

DRUGS (7)
  1. NEURONTIN [Suspect]
     Dosage: UNK
  2. AMOXICILLIN [Suspect]
     Dosage: UNK
  3. ERYTHROMYCIN [Suspect]
     Dosage: UNK
  4. AMOXIL [Suspect]
     Dosage: UNK
  5. MOTRIN [Suspect]
     Dosage: UNK
  6. ATCH [Suspect]
     Dosage: UNK
  7. KEFLEX [Suspect]
     Dosage: UNK

REACTIONS (2)
  - Drug hypersensitivity [Unknown]
  - Urticaria [Unknown]
